FAERS Safety Report 5069914-6 (Version None)
Quarter: 2006Q3

REPORT INFORMATION
  Report Type: 
  Country: None (occurrence: None)
  Receive Date: 20060731
  Receipt Date: 20060719
  Transmission Date: 20061208
  Serious: Yes (Other)
  Sender: FDA-Public Use
  Company Number: 2006069099

PATIENT
  Age: 28 Year
  Sex: Female
  Weight: 57 kg

DRUGS (1)
  1. DEPO-PROVERA [Suspect]
     Indication: CONTRACEPTION
     Dosage: 150 MG (150 MG, EVERY 12 WEEKS), INTRAMUSCULAR
     Route: 030
     Dates: start: 19960101

REACTIONS (2)
  - DIPLOPIA [None]
  - INTRACRANIAL MENINGIOMA MALIGNANT [None]
